FAERS Safety Report 16919888 (Version 1)
Quarter: 2019Q4

REPORT INFORMATION
  Report Type: Spontaneous
  Country: US (occurrence: US)
  Receive Date: 20190823
  Receipt Date: 20190823
  Transmission Date: 20200122
  Serious: No
  Sender: FDA-Public Use
  Company Number: None

PATIENT
  Age: 31 Year
  Sex: Female

DRUGS (2)
  1. HYDROXYPROGEST CAPR SDV 250MG/ML AMNEAL PHARMACEUTICALS [Suspect]
     Active Substance: HYDROXYPROGESTERONE CAPROATE
     Indication: PREMATURE LABOUR
     Route: 030
     Dates: start: 20190720
  2. HYDROXYPROGEST CAPR SDV 250MG/ML AMNEAL PHARMACEUTICALS [Suspect]
     Active Substance: HYDROXYPROGESTERONE CAPROATE
     Indication: PROPHYLAXIS
     Route: 030
     Dates: start: 20190720

REACTIONS (2)
  - Pruritus [None]
  - Induration [None]

NARRATIVE: CASE EVENT DATE: 20190801
